FAERS Safety Report 20605246 (Version 1)
Quarter: 2022Q1

REPORT INFORMATION
  Report Type: Spontaneous
  Country: US (occurrence: US)
  Receive Date: 20220317
  Receipt Date: 20220317
  Transmission Date: 20220423
  Serious: No
  Sender: FDA-Public Use
  Company Number: US-SA-SAC20220311001477

PATIENT
  Age: 26 Year
  Sex: Male

DRUGS (5)
  1. DUPIXENT [Suspect]
     Active Substance: DUPILUMAB
     Indication: Dermatitis atopic
     Dosage: 300 MG, QOW
     Route: 058
  2. ATENOLOL [Concomitant]
     Active Substance: ATENOLOL
     Dosage: UNK MG
  3. XYZAL [Concomitant]
     Active Substance: LEVOCETIRIZINE DIHYDROCHLORIDE
     Dosage: UNK MG
  4. PREDNISONE [Concomitant]
     Active Substance: PREDNISONE
     Dosage: UNK
  5. HALOG [Concomitant]
     Active Substance: HALCINONIDE

REACTIONS (3)
  - Rash [Recovering/Resolving]
  - Dermatitis atopic [Unknown]
  - Therapeutic response decreased [Unknown]
